FAERS Safety Report 8151233-2 (Version None)
Quarter: 2012Q1

REPORT INFORMATION
  Report Type: 
  Country: None (occurrence: None)
  Receive Date: 20120220
  Receipt Date: 20120214
  Transmission Date: 20120608
  Serious: Yes (Other)
  Sender: FDA-Public Use
  Company Number: US-GILEAD-2012-0050934

PATIENT
  Age: 60 Year
  Sex: Female

DRUGS (3)
  1. TYVASO [Concomitant]
  2. LETAIRIS [Suspect]
     Indication: PRODUCT USED FOR UNKNOWN INDICATION
     Dosage: 10 MG, UNK
     Route: 048
     Dates: start: 20090225
  3. REVATIO [Concomitant]

REACTIONS (1)
  - LUNG NEOPLASM MALIGNANT [None]
